FAERS Safety Report 22368835 (Version 1)
Quarter: 2023Q2

REPORT INFORMATION
  Report Type: Spontaneous
  Country: US (occurrence: US)
  Receive Date: 20230525
  Receipt Date: 20230525
  Transmission Date: 20230721
  Serious: No
  Sender: FDA-Public Use
  Company Number: US-INSUD PHARMA-2305US03119

PATIENT

DRUGS (2)
  1. PROGESTERONE [Suspect]
     Active Substance: PROGESTERONE
     Indication: Hormone replacement therapy
     Dosage: 400 MG, TWICE DAILY
     Route: 048
     Dates: start: 20230309
  2. ESTRADIOL TRANSDERMAL SYSTEM [Concomitant]
     Active Substance: ESTRADIOL
     Indication: Product used for unknown indication
     Dosage: 0.05 MG, ONCE A WEEK
     Route: 062

REACTIONS (4)
  - Drug ineffective [Not Recovered/Not Resolved]
  - Endometrial thickening [Not Recovered/Not Resolved]
  - Progesterone decreased [Not Recovered/Not Resolved]
  - Product substitution issue [Not Recovered/Not Resolved]

NARRATIVE: CASE EVENT DATE: 20230101
